FAERS Safety Report 24847432 (Version 2)
Quarter: 2025Q3

REPORT INFORMATION
  Report Type: Spontaneous
  Country: CN (occurrence: CN)
  Receive Date: 20250116
  Receipt Date: 20250803
  Transmission Date: 20251020
  Serious: Yes (Other)
  Sender: ALEXION PHARMACEUTICALS
  Company Number: CN-ASTRAZENECA-202501GLO005466CN

PATIENT
  Age: 68 Year
  Sex: Male

DRUGS (6)
  1. DURVALUMAB [Suspect]
     Active Substance: DURVALUMAB
     Indication: Small cell lung cancer limited stage
  2. ETOPOSIDE [Suspect]
     Active Substance: ETOPOSIDE
     Indication: Small cell lung cancer limited stage
     Dosage: 100 MILLIGRAM, QD; 3 CYCLES
  3. ETOPOSIDE [Suspect]
     Active Substance: ETOPOSIDE
     Dosage: 100 MILLIGRAM, QD
  4. CISPLATIN [Suspect]
     Active Substance: CISPLATIN
     Indication: Small cell lung cancer limited stage
     Dosage: 30 MILLIGRAM, QD
  5. PACLITAXEL [Concomitant]
     Active Substance: PACLITAXEL
     Indication: Small cell lung cancer limited stage
  6. CARBOPLATIN [Concomitant]
     Active Substance: CARBOPLATIN
     Indication: Small cell lung cancer limited stage

REACTIONS (1)
  - Myelosuppression [Recovered/Resolved]
